FAERS Safety Report 7593652-9 (Version None)
Quarter: 2011Q3

REPORT INFORMATION
  Report Type: 
  Country: None (occurrence: None)
  Receive Date: 20110706
  Receipt Date: 20110630
  Transmission Date: 20111222
  Serious: Yes (Life-Threatening, Hospitalization, Other)
  Sender: FDA-Public Use
  Company Number: PHHO2010DE15843

PATIENT
  Sex: Male
  Weight: 135 kg

DRUGS (9)
  1. BLINDED ALISKIREN [Suspect]
     Dosage: CODE NOT BROKEN
     Route: 048
     Dates: start: 20110608
  2. BLINDED NO TREATMENT RECEIVED [Suspect]
     Indication: CARDIAC FAILURE
     Dosage: CODE NOT BROKEN
     Route: 048
     Dates: start: 20100407, end: 20110308
  3. INSPRA [Suspect]
     Indication: CARDIAC FAILURE
     Dosage: UNK
     Dates: start: 20090601, end: 20101001
  4. ENALAPRIL MALEATE [Suspect]
     Dosage: CODE NOT BROKEN
     Route: 048
     Dates: start: 20110608
  5. ENALAPRIL MALEATE [Suspect]
     Indication: CARDIAC FAILURE
     Dosage: CODE NOT BROKEN
     Route: 048
     Dates: start: 20100407, end: 20110308
  6. ENALAPRIL MALEATE [Suspect]
     Indication: CARDIAC FAILURE
     Dosage: UNK
     Dates: start: 20100202, end: 20100308
  7. BLINDED NO TREATMENT RECEIVED [Suspect]
     Dosage: CODE NOT BROKEN
     Route: 048
     Dates: start: 20110608
  8. BLINDED ALISKIREN [Suspect]
     Indication: CARDIAC FAILURE
     Dosage: CODE NOT BROKEN
     Route: 048
     Dates: start: 20100407, end: 20110308
  9. ALISKIREN [Suspect]
     Indication: CARDIAC FAILURE
     Dosage: UNK
     Dates: start: 20100309, end: 20100407

REACTIONS (11)
  - HYPOTENSION [None]
  - OEDEMA PERIPHERAL [None]
  - OEDEMA GENITAL [None]
  - VENOUS THROMBOSIS [None]
  - DISEASE PROGRESSION [None]
  - DIZZINESS [None]
  - LOCALISED OEDEMA [None]
  - SKIN ULCER [None]
  - VARICOSE VEIN [None]
  - DYSPNOEA EXERTIONAL [None]
  - PULMONARY EMBOLISM [None]
